FAERS Safety Report 24883604 (Version 1)
Quarter: 2025Q1

REPORT INFORMATION
  Report Type: Spontaneous
  Country: US (occurrence: None)
  Receive Date: 20250124
  Receipt Date: 20250124
  Transmission Date: 20250409
  Serious: No
  Sender: FDA-CTU
  Company Number: None

PATIENT
  Age: 14 Year
  Sex: Female
  Weight: 40.05 kg

DRUGS (1)
  1. COUGH DM [Suspect]
     Active Substance: DEXTROMETHORPHAN HYDROBROMIDE
     Indication: Cough
     Dosage: 10 ML EVERY 12 HOURS ORAL
     Route: 048
     Dates: start: 20250123, end: 20250124

REACTIONS (3)
  - Muscle spasms [None]
  - Mydriasis [None]
  - Unevaluable event [None]

NARRATIVE: CASE EVENT DATE: 20250124
